FAERS Safety Report 14978399 (Version 2)
Quarter: 2018Q2

REPORT INFORMATION
  Report Type: Spontaneous
  Country: JP (occurrence: JP)
  Receive Date: 20180606
  Receipt Date: 20180608
  Transmission Date: 20180711
  Serious: Yes (Other)
  Sender: FDA-Public Use
  Company Number: PHJP2018JP011812

PATIENT
  Age: 53 Year
  Sex: Male

DRUGS (1)
  1. ARRANON [Suspect]
     Active Substance: NELARABINE
     Indication: PRECURSOR T-LYMPHOBLASTIC LYMPHOMA/LEUKAEMIA
     Dosage: 1500 MG/M2, ADMINISTERED AT DAY 1, 3 AND 5
     Route: 042
     Dates: start: 20180328, end: 20180401

REACTIONS (7)
  - Monoplegia [Unknown]
  - Anorectal disorder [Unknown]
  - Motor dysfunction [Unknown]
  - Headache [Unknown]
  - Bladder disorder [Unknown]
  - Nervous system disorder [Unknown]
  - Dysphagia [Unknown]

NARRATIVE: CASE EVENT DATE: 201804
